FAERS Safety Report 7676174-6 (Version None)
Quarter: 2011Q3

REPORT INFORMATION
  Report Type: 
  Country: None (occurrence: None)
  Receive Date: 20110811
  Receipt Date: 20110802
  Transmission Date: 20111222
  Serious: Yes (Hospitalization, Other)
  Sender: FDA-Public Use
  Company Number: AU-JNJFOC-20110710857

PATIENT
  Age: 42 Year
  Sex: Male

DRUGS (1)
  1. INVEGA [Suspect]
     Indication: SCHIZOPHRENIA
     Dosage: 6MG?
     Route: 048

REACTIONS (3)
  - SUICIDAL IDEATION [None]
  - HOMICIDAL IDEATION [None]
  - AKATHISIA [None]
